FAERS Safety Report 19819775 (Version 1)
Quarter: 2021Q3

REPORT INFORMATION
  Report Type: Spontaneous
  Country: US (occurrence: US)
  Receive Date: 20210913
  Receipt Date: 20210913
  Transmission Date: 20211014
  Serious: No
  Sender: FDA-Public Use
  Company Number: US-ORGANON-O2109USA000175

PATIENT
  Age: 76 Year
  Sex: Male

DRUGS (5)
  1. LOTRISONE [Suspect]
     Active Substance: BETAMETHASONE DIPROPIONATE\CLOTRIMAZOLE
     Indication: UMBILICAL ERYTHEMA
     Dosage: UNK
  2. BACITRACIN. [Concomitant]
     Active Substance: BACITRACIN
     Dosage: UNK
  3. SILVER NITRATE. [Concomitant]
     Active Substance: SILVER NITRATE
     Dosage: UNK
  4. DOXYCYCLINE. [Concomitant]
     Active Substance: DOXYCYCLINE
     Dosage: UNK
  5. HYDROGEN PEROXIDE. [Concomitant]
     Active Substance: HYDROGEN PEROXIDE

REACTIONS (1)
  - Product use in unapproved indication [Unknown]
